FAERS Safety Report 7124305-9 (Version None)
Quarter: 2010Q4

REPORT INFORMATION
  Report Type: 
  Country: None (occurrence: None)
  Receive Date: 20101126
  Receipt Date: 20101116
  Transmission Date: 20110411
  Serious: Yes (Other)
  Sender: FDA-Public Use
  Company Number: PHHY2010US72621

PATIENT
  Sex: Female

DRUGS (7)
  1. RECLAST [Suspect]
     Dosage: UNK
     Dates: start: 20100820
  2. CELEBREX [Suspect]
  3. SOTALOL [Suspect]
  4. ACETAMINOPHEN [Concomitant]
     Dosage: 06 TAKING TO EVERY 08 HOURS
  5. POTASSIUM CHLORIDE [Concomitant]
  6. COUMADIN [Concomitant]
  7. CITRICAL [Concomitant]

REACTIONS (19)
  - ARTHRALGIA [None]
  - ARTHRITIS [None]
  - BACK PAIN [None]
  - GAIT DISTURBANCE [None]
  - HEADACHE [None]
  - HYPOAESTHESIA [None]
  - INFLUENZA LIKE ILLNESS [None]
  - JOINT SWELLING [None]
  - METABOLIC DISORDER [None]
  - MOVEMENT DISORDER [None]
  - MUSCULOSKELETAL CHEST PAIN [None]
  - MUSCULOSKELETAL PAIN [None]
  - MUSCULOSKELETAL STIFFNESS [None]
  - MYALGIA [None]
  - PAIN IN EXTREMITY [None]
  - PAIN IN JAW [None]
  - PARALYSIS [None]
  - PYREXIA [None]
  - URINE OUTPUT INCREASED [None]
